FAERS Safety Report 11498527 (Version 1)
Quarter: 2015Q3

REPORT INFORMATION
  Report Type: Spontaneous
  Country: DE (occurrence: DE)
  Receive Date: 20150911
  Receipt Date: 20150911
  Transmission Date: 20151125
  Serious: Yes (Other)
  Sender: FDA-Public Use
  Company Number: DE-ROXANE LABORATORIES, INC.-2015-RO-01506RO

PATIENT
  Sex: Male

DRUGS (1)
  1. PREDNISONE. [Suspect]
     Active Substance: PREDNISONE
     Indication: PAROXYSMAL NOCTURNAL HAEMOGLOBINURIA
     Route: 065

REACTIONS (9)
  - Hypertension [Unknown]
  - Periarthritis calcarea [Unknown]
  - Treatment failure [Recovered/Resolved]
  - Acne [Unknown]
  - Tendon disorder [Unknown]
  - Type 1 diabetes mellitus [Unknown]
  - Osteoporosis [Unknown]
  - Portal fibrosis [Unknown]
  - Cushing^s syndrome [Unknown]
